FAERS Safety Report 24799381 (Version 1)
Quarter: 2025Q1

REPORT INFORMATION
  Report Type: Spontaneous
  Country: FR (occurrence: FR)
  Receive Date: 20250102
  Receipt Date: 20250102
  Transmission Date: 20250408
  Serious: Yes (Hospitalization, Other)
  Sender: ACCORD
  Company Number: FR-Accord-461621

PATIENT
  Age: 74 Year
  Sex: Male
  Weight: 96.5 kg

DRUGS (7)
  1. METHOTREXATE [Suspect]
     Active Substance: METHOTREXATE
     Indication: Psoriatic arthropathy
     Dosage: 15 MG OF ORAL METHOTREXATE
     Route: 048
  2. BISOPROLOL [Concomitant]
     Active Substance: BISOPROLOL
  3. APIXABAN [Concomitant]
     Active Substance: APIXABAN
  4. FUROSEMIDE [Concomitant]
     Active Substance: FUROSEMIDE
  5. FOLATE SODIUM [Concomitant]
     Active Substance: FOLATE SODIUM
     Indication: Supplementation therapy
  6. RAMIPRIL [Concomitant]
     Active Substance: RAMIPRIL
  7. PANTOPRAZOLE [Concomitant]
     Active Substance: PANTOPRAZOLE

REACTIONS (4)
  - Respiratory syncytial virus infection [Recovered/Resolved]
  - Respiratory distress [Recovered/Resolved]
  - Pancytopenia [Recovered/Resolved]
  - Hypoalbuminaemia [Recovered/Resolved]
